FAERS Safety Report 5615670-X (Version None)
Quarter: 2008Q1

REPORT INFORMATION
  Report Type: 
  Country: None (occurrence: None)
  Receive Date: 20080206
  Receipt Date: 20080128
  Transmission Date: 20080703
  Serious: Yes (Hospitalization)
  Sender: FDA-Public Use
  Company Number: IT-MERCK-0801ITA00045

PATIENT
  Age: 12 Year
  Sex: Male

DRUGS (3)
  1. PRIMAXIN [Suspect]
     Indication: PERITONITIS
     Route: 065
     Dates: start: 20080116, end: 20080118
  2. TORADOL [Suspect]
     Route: 048
     Dates: start: 20080116, end: 20080118
  3. SOMATROPIN [Concomitant]
     Route: 065

REACTIONS (3)
  - LOCALISED OEDEMA [None]
  - NON-CARDIAC CHEST PAIN [None]
  - OLIGURIA [None]
